FAERS Safety Report 10379337 (Version 2)
Quarter: 2014Q3

REPORT INFORMATION
  Report Type: Spontaneous
  Country: JP (occurrence: JP)
  Receive Date: 20140812
  Receipt Date: 20140812
  Transmission Date: 20150326
  Serious: Yes (Disabling)
  Sender: FDA-Public Use
  Company Number: PHHY2012JP047224

PATIENT
  Age: 59 Year
  Sex: Female

DRUGS (9)
  1. ISOBIDE [Concomitant]
     Active Substance: ISOSORBIDE
     Indication: METASTATIC RENAL CELL CARCINOMA
     Dosage: 84 G, UNK
     Route: 048
     Dates: start: 20110106
  2. ALLOID [Concomitant]
     Dosage: 100 MG, UNK
     Route: 048
     Dates: start: 20110223, end: 20120324
  3. URSO [Concomitant]
     Active Substance: URSODIOL
     Indication: METASTATIC RENAL CELL CARCINOMA
     Dosage: 150 MG, UNK
     Route: 048
     Dates: start: 20110128
  4. PROMAC [Concomitant]
     Active Substance: NITROFURANTOIN
     Indication: PROPHYLAXIS
     Dosage: 150 MG, UNK
     Route: 048
     Dates: start: 20110223, end: 20120324
  5. TEGRETOL [Suspect]
     Active Substance: CARBAMAZEPINE
     Route: 048
     Dates: start: 20110121, end: 20110202
  6. AFINITOR [Suspect]
     Active Substance: EVEROLIMUS
     Indication: METASTATIC RENAL CELL CARCINOMA
     Dosage: 10 MG, DAILY
     Route: 048
     Dates: start: 20110224, end: 20110321
  7. AFINITOR [Suspect]
     Active Substance: EVEROLIMUS
     Dosage: 5 MG, DAILY
     Route: 048
     Dates: start: 20110330, end: 20120324
  8. PREDONINE [Concomitant]
     Active Substance: PREDNISOLONE\PREDNISOLONE ACETATE\PREDNISOLONE SODIUM SUCCINATE
     Indication: METASTATIC RENAL CELL CARCINOMA
     Dosage: 10 MG, UNK
     Route: 048
     Dates: start: 20110106
  9. TAKEPRON [Concomitant]
     Active Substance: LANSOPRAZOLE
     Indication: METASTATIC RENAL CELL CARCINOMA
     Dosage: 15 MG, UNK
     Route: 048
     Dates: start: 20110106, end: 20110324

REACTIONS (4)
  - Malignant neoplasm progression [Recovered/Resolved with Sequelae]
  - Stomatitis [Recovered/Resolved]
  - Pleural effusion [Unknown]
  - Pyrexia [Recovered/Resolved]

NARRATIVE: CASE EVENT DATE: 20110322
